FAERS Safety Report 7962724 (Version 3)
Quarter: 2015Q3

REPORT INFORMATION
  Report Type: Spontaneous
  Country: US (occurrence: US)
  Receive Date: 20110526
  Receipt Date: 20150805
  Transmission Date: 20151125
  Serious: Yes (Hospitalization, Other)
  Sender: FDA-Public Use
  Company Number: US-BAYER-2011-044887

PATIENT
  Age: 29 Year
  Sex: Female
  Weight: 124 kg

DRUGS (11)
  1. MAGNESIUM [Concomitant]
     Active Substance: MAGNESIUM
     Indication: DEPRESSION
  2. LAMICTAL [Concomitant]
     Active Substance: LAMOTRIGINE
     Dosage: UNK
     Dates: start: 20090902
  3. YASMIN [Suspect]
     Active Substance: DROSPIRENONE\ETHINYL ESTRADIOL
     Indication: PREMENSTRUAL DYSPHORIC DISORDER
     Dosage: UNK
     Dates: start: 200609, end: 200612
  4. METOPROLOL [Concomitant]
     Active Substance: METOPROLOL
     Dosage: UNK UNK, QD
     Route: 048
  5. LORATADINE. [Concomitant]
     Active Substance: LORATADINE
     Dosage: UNK UNK, PRN
     Route: 048
  6. DROSPIRENONE W/ETHINYLESTRADIOL [Concomitant]
     Active Substance: DROSPIRENONE\ETHINYL ESTRADIOL
  7. MIRENA [Suspect]
     Active Substance: LEVONORGESTREL
     Dosage: UNK
     Route: 015
     Dates: start: 200804, end: 20130619
  8. LAMOTRIGINE. [Concomitant]
     Active Substance: LAMOTRIGINE
     Dosage: 125 MG, BID
     Route: 048
  9. YASMIN [Suspect]
     Active Substance: DROSPIRENONE\ETHINYL ESTRADIOL
     Indication: CONTRACEPTION
     Dosage: UNK
     Dates: start: 200411, end: 200507
  10. AGGRENOX [Concomitant]
     Active Substance: ASPIRIN\DIPYRIDAMOLE
  11. PROZAC [Concomitant]
     Active Substance: FLUOXETINE HYDROCHLORIDE
     Indication: DEPRESSION

REACTIONS (13)
  - Dizziness [Recovered/Resolved]
  - Cerebrovascular accident [Recovered/Resolved]
  - Hemiparesis [None]
  - Pain [Recovered/Resolved]
  - Partial seizures [Recovering/Resolving]
  - Emotional distress [None]
  - General physical health deterioration [None]
  - Anxiety [None]
  - Headache [Recovered/Resolved]
  - Muscle twitching [Recovered/Resolved]
  - Mental disorder [None]
  - Cerebrovascular accident [None]
  - Paraesthesia [Recovered/Resolved]

NARRATIVE: CASE EVENT DATE: 20061211
